FAERS Safety Report 7521143-X (Version None)
Quarter: 2011Q2

REPORT INFORMATION
  Report Type: 
  Country: None (occurrence: None)
  Receive Date: 20110603
  Receipt Date: 20101208
  Transmission Date: 20111010
  Serious: Yes (Other)
  Sender: FDA-Public Use
  Company Number: US-BAYER-2010-003351

PATIENT
  Sex: Female

DRUGS (1)
  1. ASPIRIN [Suspect]
     Dosage: 81 MG, QD
     Route: 048
     Dates: start: 20091201

REACTIONS (1)
  - ARRHYTHMIA [None]
